FAERS Safety Report 8235606-5 (Version None)
Quarter: 2012Q1

REPORT INFORMATION
  Report Type: 
  Country: None (occurrence: None)
  Receive Date: 20120326
  Receipt Date: 20120314
  Transmission Date: 20120608
  Serious: Yes (Other)
  Sender: FDA-Public Use
  Company Number: FR-ELI_LILLY_AND_COMPANY-FR201203004089

PATIENT
  Sex: Male

DRUGS (8)
  1. ZYPREXA [Suspect]
     Indication: ABNORMAL BEHAVIOUR
     Dosage: 20 MG, QD
     Route: 065
     Dates: end: 20120131
  2. TRIMEPRAZINE TARTRATE [Concomitant]
     Dosage: UNK UNK, UNKNOWN
     Route: 065
  3. ALPRAZOLAM [Concomitant]
     Dosage: 1.5 MG, QD
     Route: 065
  4. IMOVANE [Concomitant]
     Dosage: 1 DF, QD
     Route: 065
  5. LEPTICUR [Concomitant]
     Dosage: 2 DF, QD
     Route: 065
  6. ATARAX [Concomitant]
     Dosage: 2 DF, QD
     Route: 065
  7. NOZINAN [Concomitant]
     Dosage: UNK, UNKNOWN
     Route: 065
  8. DEPAKOTE [Concomitant]
     Indication: ABNORMAL BEHAVIOUR
     Dosage: 1500 MG, QD
     Route: 048
     Dates: end: 20120131

REACTIONS (2)
  - THROMBOCYTOPENIA [None]
  - OFF LABEL USE [None]
